FAERS Safety Report 6327166-0 (Version None)
Quarter: 2009Q3

REPORT INFORMATION
  Report Type: 
  Country: None (occurrence: None)
  Receive Date: 20090825
  Receipt Date: 20090820
  Transmission Date: 20100115
  Serious: Yes (Other)
  Sender: FDA-Public Use
  Company Number: D0062506A

PATIENT
  Sex: Male

DRUGS (1)
  1. VIANI FORTE [Suspect]
     Dosage: 550UG UNKNOWN
     Route: 055

REACTIONS (3)
  - CHOKING SENSATION [None]
  - DYSGEUSIA [None]
  - PRODUCT QUALITY ISSUE [None]
